FAERS Safety Report 12205794 (Version 2)
Quarter: 2016Q1

REPORT INFORMATION
  Report Type: Spontaneous
  Country: BR (occurrence: BR)
  Receive Date: 20160323
  Receipt Date: 20160324
  Transmission Date: 20160526
  Serious: Yes (Other)
  Sender: FDA-Public Use
  Company Number: BR-PFIZER INC-2016164240

PATIENT
  Age: 49 Year
  Weight: 80 kg

DRUGS (2)
  1. SUSTRATE [Concomitant]
     Active Substance: PROPATYL NITRATE
     Indication: CORONARY ARTERY DISEASE
     Dosage: 20 MG, DAILY
  2. LIPITOR [Suspect]
     Active Substance: ATORVASTATIN CALCIUM
     Indication: BLOOD CHOLESTEROL INCREASED
     Dosage: 20 MG, 1X/DAY (AT NIGHT)

REACTIONS (3)
  - Angina pectoris [Unknown]
  - Hypertensive crisis [Unknown]
  - Coronary artery occlusion [Unknown]
